FAERS Safety Report 8414744-8 (Version None)
Quarter: 2012Q2

REPORT INFORMATION
  Report Type: 
  Country: None (occurrence: None)
  Receive Date: 20120605
  Receipt Date: 20120531
  Transmission Date: 20120825
  Serious: Yes (Other)
  Sender: FDA-Public Use
  Company Number: US-AMGEN-USASP2012034344

PATIENT
  Sex: Female

DRUGS (11)
  1. CALCIUM [Concomitant]
  2. OMEPRAZOLE [Concomitant]
  3. SIMVASTATIN [Concomitant]
  4. PROLIA [Suspect]
     Indication: OSTEOPOROSIS POSTMENOPAUSAL
     Dosage: 60 MG, Q6MO
  5. LIPITOR [Concomitant]
  6. VITAMIN B COMPLEX CAP [Concomitant]
  7. NEXIUM [Concomitant]
  8. ZETIA [Concomitant]
  9. PRADAXA [Concomitant]
  10. LISINOPRIL AND HYDROCHLOROTHIAZIDE [Concomitant]
  11. VITAMIN D [Concomitant]

REACTIONS (1)
  - OSTEOMYELITIS [None]
